FAERS Safety Report 13669173 (Version 1)
Quarter: 2017Q2

REPORT INFORMATION
  Report Type: Spontaneous
  Country: CH (occurrence: CH)
  Receive Date: 20170620
  Receipt Date: 20170620
  Transmission Date: 20170830
  Serious: Yes (Hospitalization)
  Sender: FDA-Public Use
  Company Number: CH-PFIZER INC-2017264145

PATIENT
  Age: 76 Year
  Sex: Female
  Weight: 75 kg

DRUGS (8)
  1. CIPROFLOXACIN. [Suspect]
     Active Substance: CIPROFLOXACIN
     Indication: PYELONEPHRITIS
     Dosage: 500 MG, 2X/DAY
     Route: 048
     Dates: start: 20170311, end: 20170317
  2. PANTOZOL [Concomitant]
     Active Substance: PANTOPRAZOLE SODIUM
     Dosage: 40 MG, 1X/DAY
  3. ASPIRIN CARDIO [Concomitant]
     Active Substance: ASPIRIN
     Dosage: 100 MG, 1X/DAY
  4. COVERSUM N [Suspect]
     Active Substance: PERINDOPRIL
     Dosage: 10 MG, 1X/DAY (LONG-TERM TREATMENT)
     Dates: end: 20170317
  5. TETRALYSAL /00052901/ [Suspect]
     Active Substance: LYMECYCLINE
     Dosage: 300 MG, 1X/DAY (EARLY INTERRUPTION)
     Route: 048
     Dates: start: 201701, end: 20170308
  6. SIRDALUD [Suspect]
     Active Substance: TIZANIDINE
     Indication: BACK PAIN
  7. SIRDALUD [Suspect]
     Active Substance: TIZANIDINE
     Indication: NECK PAIN
     Dosage: 2 MG, 2X/DAY
     Route: 048
     Dates: start: 20170316, end: 20170317
  8. ALDACTONE [Suspect]
     Active Substance: SPIRONOLACTONE
     Dosage: 25 MG, 1X/DAY (LONG-TERM TREATMENT)

REACTIONS (6)
  - Hyponatraemia [Unknown]
  - Dyspnoea [Recovering/Resolving]
  - Hypotension [Recovered/Resolved]
  - Delirium [Recovered/Resolved]
  - Dehydration [Recovered/Resolved]
  - Lung disorder [Recovering/Resolving]

NARRATIVE: CASE EVENT DATE: 201701
